FAERS Safety Report 6444044-7 (Version None)
Quarter: 2009Q4

REPORT INFORMATION
  Report Type: 
  Country: None (occurrence: None)
  Receive Date: 20091116
  Receipt Date: 20091116
  Transmission Date: 20100525
  Serious: No
  Sender: FDA-Public Use
  Company Number: None

PATIENT
  Age: 85 Year
  Sex: Male

DRUGS (1)
  1. TOVIAZ [Suspect]
     Indication: ANALGESIC THERAPY
     Dosage: TAKE 1 TABLET DAILY PO
     Route: 048
     Dates: start: 20090825, end: 20090830

REACTIONS (2)
  - APPARENT DEATH [None]
  - PAIN [None]
